FAERS Safety Report 12799956 (Version 1)
Quarter: 2016Q3

REPORT INFORMATION
  Report Type: Spontaneous
  Country: US (occurrence: US)
  Receive Date: 20160930
  Receipt Date: 20160930
  Transmission Date: 20161109
  Serious: Yes (Life-Threatening)
  Sender: FDA-Public Use
  Company Number: US-BAUSCH-BL-2016-023857

PATIENT
  Age: 88 Year
  Sex: Male

DRUGS (1)
  1. HERBESSER [Suspect]
     Active Substance: DILTIAZEM HYDROCHLORIDE
     Indication: PRODUCT USED FOR UNKNOWN INDICATION
     Dosage: OVERDOSED WITH ATLEAST 12 TABLETS OF 60MG
     Route: 048

REACTIONS (6)
  - Confusional state [Unknown]
  - Hyponatraemia [Unknown]
  - Bradycardia [Unknown]
  - Hypotension [Unknown]
  - Overdose [Unknown]
  - Anaemia [Unknown]
